FAERS Safety Report 19733432 (Version 1)
Quarter: 2021Q3

REPORT INFORMATION
  Report Type: Spontaneous
  Country: US (occurrence: US)
  Receive Date: 20210823
  Receipt Date: 20210823
  Transmission Date: 20211014
  Serious: Yes (Other)
  Sender: FDA-Public Use
  Company Number: US-HIKMA PHARMACEUTICALS USA INC.-US-H14001-21-03663

PATIENT
  Age: 66 Year
  Sex: Female
  Weight: 55.79 kg

DRUGS (10)
  1. CIPROFLOXACIN. [Suspect]
     Active Substance: CIPROFLOXACIN
     Indication: DIVERTICULITIS
     Dosage: UNKNOWN
     Route: 048
  2. IRON [Concomitant]
     Active Substance: IRON
     Indication: MEDICAL DIET
     Route: 048
  3. PURITAN^S PRIDE HAIR, SKIN AND NAILS [Suspect]
     Active Substance: DIETARY SUPPLEMENT\MINERALS\VITAMINS
     Indication: MEDICAL DIET
     Dosage: ONCE DAILY
     Route: 048
     Dates: start: 2020
  4. CALCIUM PLUS VITAMIN D [Concomitant]
     Active Substance: CALCIUM\VITAMIN D
     Indication: MEDICAL DIET
     Route: 048
  5. NIACIN. [Concomitant]
     Active Substance: NIACIN
     Indication: MEDICAL DIET
     Route: 048
  6. LEVOTHYROXINE. [Concomitant]
     Active Substance: LEVOTHYROXINE
     Indication: HYPOTHYROIDISM
     Route: 048
  7. METOPROLOL. [Concomitant]
     Active Substance: METOPROLOL
     Indication: PRODUCT USED FOR UNKNOWN INDICATION
     Route: 048
  8. ASPIRIN. [Concomitant]
     Active Substance: ASPIRIN
     Indication: PRODUCT USED FOR UNKNOWN INDICATION
     Route: 048
  9. TURMERIC [Concomitant]
     Active Substance: HERBALS\TURMERIC
     Indication: MEDICAL DIET
     Route: 048
  10. PURITAN^S PRIDE ULTRA WOMAN 50 PLUS [Suspect]
     Active Substance: DIETARY SUPPLEMENT\MINERALS\VITAMINS
     Indication: MEDICAL DIET
     Dosage: ONCE DAILY
     Route: 048
     Dates: start: 2019, end: 202106

REACTIONS (2)
  - Neuropathy peripheral [Unknown]
  - Impaired quality of life [Unknown]
